FAERS Safety Report 22033356 (Version 1)
Quarter: 2023Q1

REPORT INFORMATION
  Report Type: Spontaneous
  Country: US (occurrence: US)
  Receive Date: 20230224
  Receipt Date: 20230224
  Transmission Date: 20230417
  Serious: No
  Sender: FDA-Public Use
  Company Number: US-TEVA-2023-US-2854535

PATIENT
  Age: 59 Year
  Sex: Female

DRUGS (4)
  1. PROAIR DIGIHALER [Suspect]
     Active Substance: ALBUTEROL SULFATE
     Indication: Product used for unknown indication
     Route: 065
     Dates: start: 202212
  2. PROAIR DIGIHALER [Suspect]
     Active Substance: ALBUTEROL SULFATE
     Dosage: 90 MICROGRAM DAILY;
     Route: 065
  3. PROAIR DIGIHALER [Suspect]
     Active Substance: ALBUTEROL SULFATE
  4. PROAIR DIGIHALER [Suspect]
     Active Substance: ALBUTEROL SULFATE

REACTIONS (4)
  - Drug ineffective [Unknown]
  - Incorrect dose administered [Unknown]
  - Product cleaning inadequate [Unknown]
  - Wrong technique in device usage process [Unknown]
